FAERS Safety Report 6458844-0 (Version None)
Quarter: 2009Q4

REPORT INFORMATION
  Report Type: 
  Country: None (occurrence: None)
  Receive Date: 20091125
  Receipt Date: 20091125
  Transmission Date: 20100525
  Serious: Yes (Hospitalization)
  Sender: FDA-Public Use
  Company Number: None

PATIENT
  Sex: Male
  Weight: 77.6 kg

DRUGS (2)
  1. CISPLATIN [Suspect]
     Indication: HEAD AND NECK CANCER
     Dosage: CYCLE 1
     Dates: start: 20091102
  2. CETUXIMAB 500MG IV Q 7 DAYS [Suspect]
     Indication: HEAD AND NECK CANCER
     Dates: start: 20091116

REACTIONS (3)
  - CHILLS [None]
  - COUGH [None]
  - FEBRILE NEUTROPENIA [None]
